FAERS Safety Report 6448302-1 (Version None)
Quarter: 2009Q4

REPORT INFORMATION
  Report Type: 
  Country: None (occurrence: None)
  Receive Date: 20091120
  Receipt Date: 20091111
  Transmission Date: 20100525
  Serious: Yes (Hospitalization)
  Sender: FDA-Public Use
  Company Number: JP-SANOFI-AVENTIS-200912617JP

PATIENT
  Age: 38 Year
  Sex: Female
  Weight: 46.8 kg

DRUGS (8)
  1. INSULIN GLARGINE [Suspect]
     Indication: TYPE 1 DIABETES MELLITUS
     Dosage: DOSE AS USED: 10 UNITS  DOSE:10 UNIT(S)
     Route: 058
     Dates: start: 20070928, end: 20080901
  2. INSULIN GLARGINE [Suspect]
     Dosage: DOSE AS USED: 20 UNITS  DOSE:20 UNIT(S)
     Route: 058
     Dates: start: 20081111, end: 20081112
  3. INSULIN GLARGINE [Suspect]
     Dosage: DOSE:16 UNIT(S)
     Route: 058
     Dates: start: 20081113, end: 20081113
  4. INSULIN GLARGINE [Suspect]
     Dosage: DOSE:12 UNIT(S)
     Route: 058
     Dates: start: 20081114, end: 20081115
  5. INSULIN GLARGINE [Suspect]
     Dosage: DOSE:8 UNIT(S)
     Route: 058
     Dates: start: 20081116
  6. NOVORAPID [Suspect]
     Indication: TYPE 1 DIABETES MELLITUS
     Dosage: DOSE AS USED: 24 UNITS/DAY
     Route: 058
     Dates: start: 20081111
  7. NU-LOTAN [Concomitant]
     Indication: HYPERTENSION
     Route: 048
     Dates: start: 20081111, end: 20081112
  8. CRESTOR [Concomitant]
     Route: 048
     Dates: start: 20081111, end: 20081112

REACTIONS (3)
  - ABDOMINAL PAIN [None]
  - BLOOD GLUCOSE FLUCTUATION [None]
  - HEPATIC FUNCTION ABNORMAL [None]
